FAERS Safety Report 10307404 (Version 3)
Quarter: 2014Q4

REPORT INFORMATION
  Report Type: Spontaneous
  Country: US (occurrence: US)
  Receive Date: 20140716
  Receipt Date: 20141107
  Transmission Date: 20150528
  Serious: Yes (Hospitalization, Other)
  Sender: FDA-Public Use
  Company Number: US-JNJFOC-20140702305

PATIENT
  Age: 46 Year
  Sex: Female

DRUGS (3)
  1. PARACETAMOL [Suspect]
     Active Substance: ACETAMINOPHEN
     Indication: INFLUENZA LIKE ILLNESS
     Dosage: DAILY
     Route: 065
  2. GARLIC. [Suspect]
     Active Substance: GARLIC
     Indication: INFLUENZA LIKE ILLNESS
     Route: 065
  3. FERVEX [Suspect]
     Active Substance: ACETAMINOPHEN\ASCORBIC ACID\PHENIRAMINE MALEATE
     Indication: INFLUENZA LIKE ILLNESS
     Route: 065

REACTIONS (7)
  - Dyspepsia [Recovered/Resolved]
  - Asthenia [Recovered/Resolved]
  - Hepatic function abnormal [Recovered/Resolved]
  - Hepatotoxicity [Recovered/Resolved]
  - Abdominal pain upper [Recovered/Resolved]
  - Accidental overdose [Unknown]
  - Vomiting [Recovered/Resolved]
